FAERS Safety Report 16392277 (Version 1)
Quarter: 2019Q2

REPORT INFORMATION
  Report Type: Spontaneous
  Country: US (occurrence: US)
  Receive Date: 20190605
  Receipt Date: 20190605
  Transmission Date: 20190711
  Serious: No
  Sender: FDA-Public Use
  Company Number: US-ROCHE-2270724

PATIENT
  Age: 44 Year
  Sex: Male
  Weight: 74.91 kg

DRUGS (1)
  1. OCREVUS [Suspect]
     Active Substance: OCRELIZUMAB
     Indication: RELAPSING-REMITTING MULTIPLE SCLEROSIS
     Route: 065
     Dates: start: 20190208

REACTIONS (5)
  - Balance disorder [Unknown]
  - Fatigue [Unknown]
  - Migraine [Recovered/Resolved]
  - Vomiting [Unknown]
  - Mental impairment [Unknown]

NARRATIVE: CASE EVENT DATE: 20190211
